FAERS Safety Report 7509916-0 (Version None)
Quarter: 2011Q2

REPORT INFORMATION
  Report Type: 
  Country: None (occurrence: None)
  Receive Date: 20110527
  Receipt Date: 20110516
  Transmission Date: 20111010
  Serious: Yes (Hospitalization)
  Sender: FDA-Public Use
  Company Number: FI-JNJFOC-20110507584

PATIENT
  Sex: Female

DRUGS (5)
  1. FOLIC ACID [Concomitant]
  2. METHOTREXATE [Concomitant]
  3. REMICADE [Suspect]
     Indication: PUSTULAR PSORIASIS
     Dosage: 6TH INFUSION
     Route: 042
     Dates: start: 20110131
  4. REMICADE [Suspect]
     Route: 042
     Dates: start: 20100701
  5. THYROXIN [Concomitant]

REACTIONS (1)
  - LUPUS-LIKE SYNDROME [None]
